FAERS Safety Report 5319781-8 (Version None)
Quarter: 2007Q1

REPORT INFORMATION
  Report Type: 
  Country: None (occurrence: None)
  Receive Date: 20070201
  Receipt Date: 20060831
  Transmission Date: 20070707
  Serious: Yes (Hospitalization)
  Sender: FDA-Public Use
  Company Number: 2006106958

PATIENT
  Age: 47 Year
  Sex: Female
  Weight: 62.5964 kg

DRUGS (4)
  1. AROMASIN [Suspect]
     Indication: BREAST CANCER
     Dosage: 50 MG (25 MG, 2 IN  1 D)
     Dates: start: 20050101
  2. TAGAMET [Concomitant]
  3. LEXAPRO [Concomitant]
  4. XANAX [Concomitant]

REACTIONS (5)
  - CHILLS [None]
  - COUGH [None]
  - INFLUENZA LIKE ILLNESS [None]
  - NAUSEA [None]
  - PYREXIA [None]
